FAERS Safety Report 11225959 (Version 2)
Quarter: 2015Q2

REPORT INFORMATION
  Report Type: Spontaneous
  Country: PT (occurrence: PT)
  Receive Date: 20150629
  Receipt Date: 20150630
  Transmission Date: 20150821
  Serious: Yes (Other)
  Sender: FDA-Public Use
  Company Number: PT-PFIZER INC-2015209228

PATIENT
  Age: 65 Year
  Sex: Male

DRUGS (1)
  1. PREGABALIN. [Suspect]
     Active Substance: PREGABALIN
     Indication: PAIN
     Dosage: 600 MG, DAILY

REACTIONS (3)
  - Drug ineffective [Recovered/Resolved]
  - Abasia [Recovered/Resolved]
  - Sleep disorder [Recovered/Resolved]
